FAERS Safety Report 7336628-9 (Version None)
Quarter: 2011Q1

REPORT INFORMATION
  Report Type: 
  Country: None (occurrence: None)
  Receive Date: 20110308
  Receipt Date: 20110225
  Transmission Date: 20110831
  Serious: Yes (Hospitalization)
  Sender: FDA-Public Use
  Company Number: JP-AMGEN-JPNSP2011012206

PATIENT
  Age: 70 Year
  Sex: Female

DRUGS (13)
  1. DICLOFENAC SODIUM [Concomitant]
     Dosage: UNK
  2. GLIMICRON [Concomitant]
     Dosage: UNK
  3. MAG-LAX [Concomitant]
     Dosage: UNK
  4. FOLIAMIN [Concomitant]
     Dosage: UNK
  5. MYSLEE [Concomitant]
     Dosage: UNK
  6. ENBREL [Suspect]
     Indication: RHEUMATOID ARTHRITIS
     Dosage: 50 MG, UNK
     Route: 058
     Dates: start: 20090528, end: 20110131
  7. GASLON [Concomitant]
     Dosage: UNK
  8. RHEUMATREX [Concomitant]
     Dosage: UNK
  9. ONE-ALPHA [Concomitant]
     Dosage: UNK
  10. TAKEPRON [Concomitant]
     Dosage: UNK
  11. ALENDRONATE SODIUM [Concomitant]
     Dosage: UNK
  12. PREDNISOLONE [Concomitant]
     Dosage: UNK
  13. SODIUM ALGINATE [Concomitant]
     Dosage: UNK

REACTIONS (1)
  - TRANSITIONAL CELL CARCINOMA [None]
